FAERS Safety Report 20463446 (Version 1)
Quarter: 2022Q1

REPORT INFORMATION
  Report Type: Spontaneous
  Country: US (occurrence: US)
  Receive Date: 20220211
  Receipt Date: 20220211
  Transmission Date: 20220424
  Serious: Yes (Other)
  Sender: FDA-Public Use
  Company Number: US-NOVARTISPH-NVSC2022US030378

PATIENT
  Age: 65 Year
  Sex: Male

DRUGS (6)
  1. RANITIDINE [Suspect]
     Active Substance: RANITIDINE
     Dosage: 150 MG,,OTHER,TWICE DAILY, ON 4 WEEKS, OFF 1 WEEK, REPEAT
     Route: 048
     Dates: start: 200801, end: 201701
  2. RANITIDINE [Suspect]
     Active Substance: RANITIDINE
     Indication: Abdominal discomfort
  3. RANITIDINE [Suspect]
     Active Substance: RANITIDINE
     Indication: Dyspepsia
  4. RANITIDINE [Suspect]
     Active Substance: RANITIDINE
     Dosage: 150 MG,,OTHER,TWICE DAILY, ON 4 WEEKS, OFF 1 WEEK, REPEAT
     Route: 048
     Dates: start: 200801, end: 201701
  5. RANITIDINE [Suspect]
     Active Substance: RANITIDINE
     Indication: Abdominal discomfort
  6. RANITIDINE [Suspect]
     Active Substance: RANITIDINE
     Indication: Dyspepsia

REACTIONS (2)
  - Bladder cancer [Unknown]
  - Incorrect dose administered [Unknown]

NARRATIVE: CASE EVENT DATE: 20190101
